FAERS Safety Report 25592536 (Version 1)
Quarter: 2025Q3

REPORT INFORMATION
  Report Type: Spontaneous
  Country: US (occurrence: US)
  Receive Date: 20250722
  Receipt Date: 20250722
  Transmission Date: 20251021
  Serious: Yes (Other)
  Sender: ELI LILLY AND COMPANY
  Company Number: US-ELI_LILLY_AND_COMPANY-US202507013980

PATIENT
  Sex: Female

DRUGS (2)
  1. INSULIN LISPRO [Suspect]
     Active Substance: INSULIN LISPRO
     Indication: Product used for unknown indication
  2. INSULIN LISPRO [Suspect]
     Active Substance: INSULIN LISPRO

REACTIONS (3)
  - Blood ketone body increased [Unknown]
  - Blood glucose increased [Unknown]
  - Drug ineffective [Unknown]
